FAERS Safety Report 11771937 (Version 1)
Quarter: 2015Q4

REPORT INFORMATION
  Report Type: Spontaneous
  Country: US (occurrence: None)
  Receive Date: 20151123
  Receipt Date: 20151123
  Transmission Date: 20160304
  Serious: Yes (Hospitalization)
  Sender: FDA-Public Use
  Company Number: None

PATIENT
  Age: 75 Year
  Sex: Male
  Weight: 113.4 kg

DRUGS (5)
  1. METOPROLOL TART [Concomitant]
     Active Substance: METOPROLOL TARTRATE
  2. GABAPENTIN. [Concomitant]
     Active Substance: GABAPENTIN
  3. MELOXICAM. [Concomitant]
     Active Substance: MELOXICAM
  4. LISINOPRIL. [Concomitant]
     Active Substance: LISINOPRIL
  5. NORTRIPTYLINE [Suspect]
     Active Substance: NORTRIPTYLINE
     Indication: NEUROPATHY PERIPHERAL
     Route: 048
     Dates: start: 20141031, end: 20150426

REACTIONS (2)
  - Oropharyngeal pain [None]
  - Product physical issue [None]

NARRATIVE: CASE EVENT DATE: 20150430
